FAERS Safety Report 5355070-3 (Version None)
Quarter: 2007Q2

REPORT INFORMATION
  Report Type: 
  Country: None (occurrence: None)
  Receive Date: 20070531
  Receipt Date: 20061128
  Transmission Date: 20071010
  Serious: Yes (Life-Threatening, Hospitalization)
  Sender: FDA-Public Use
  Company Number: APP200600306

PATIENT
  Age: 3 Year
  Sex: Female
  Weight: 15 kg

DRUGS (8)
  1. PROTAMINE SULFATE [Suspect]
     Indication: COAGULOPATHY
     Dosage: 22 MG, ONCE, INTRAVENOUS
     Route: 042
     Dates: start: 20061122, end: 20061122
  2. LASIX [Concomitant]
  3. EPINEPHRINE [Concomitant]
  4. NOREPINEPHRINE (NOREPINEPHRINE BITARTRATE) [Concomitant]
  5. VASOPRESSIN (VASOPRESSIN) [Concomitant]
  6. ALBUMIN (HUMAN) [Concomitant]
  7. CALCIUM PHOSPHATE (CALCIUM PHOSPHATE) [Concomitant]
  8. CALCIUM GLUCONATE [Concomitant]

REACTIONS (1)
  - HYPERSENSITIVITY [None]
